FAERS Safety Report 4758329-3 (Version None)
Quarter: 2005Q3

REPORT INFORMATION
  Report Type: 
  Country: None (occurrence: None)
  Receive Date: 20050826
  Receipt Date: 20050518
  Transmission Date: 20060218
  Serious: No
  Sender: FDA-Public Use
  Company Number: WAES 0505USA02225

PATIENT
  Age: 67 Year
  Sex: Male

DRUGS (2)
  1. ZETIA [Suspect]
     Dosage: 10 MG/PO
     Route: 048
  2. ZOCOR [Concomitant]

REACTIONS (1)
  - LIVER FUNCTION TEST ABNORMAL [None]
